FAERS Safety Report 5749002-3 (Version None)
Quarter: 2008Q2

REPORT INFORMATION
  Report Type: 
  Country: None (occurrence: None)
  Receive Date: 20080527
  Receipt Date: 20080519
  Transmission Date: 20081010
  Serious: Yes (Other)
  Sender: FDA-Public Use
  Company Number: GB-JNJFOC-20080504190

PATIENT
  Age: 85 Year
  Sex: Male

DRUGS (6)
  1. REMINYL XR [Suspect]
     Route: 048
  2. REMINYL XR [Suspect]
     Route: 048
  3. REMINYL XR [Suspect]
     Indication: DEMENTIA ALZHEIMER'S TYPE
     Route: 048
  4. RANITIDINE [Concomitant]
  5. XATRAL [Concomitant]
  6. ASPIRIN [Concomitant]

REACTIONS (3)
  - ACCIDENTAL OVERDOSE [None]
  - CONFUSIONAL STATE [None]
  - MEDICATION ERROR [None]
